FAERS Safety Report 16334747 (Version 2)
Quarter: 2019Q2

REPORT INFORMATION
  Report Type: Report from Study
  Country: US (occurrence: US)
  Receive Date: 20190520
  Receipt Date: 20190528
  Transmission Date: 20190711
  Serious: Yes (Death)
  Sender: FDA-Public Use
  Company Number: US-EXELIXIS-CABO-19019142

PATIENT
  Sex: Male
  Weight: 99.77 kg

DRUGS (19)
  1. FISH OIL [Concomitant]
     Active Substance: FISH OIL
  2. ELIQUIS [Concomitant]
     Active Substance: APIXABAN
  3. MIRTAZAPINE. [Concomitant]
     Active Substance: MIRTAZAPINE
  4. SYNTHROID [Concomitant]
     Active Substance: LEVOTHYROXINE SODIUM
  5. OXYCODONE [Concomitant]
     Active Substance: OXYCODONE
  6. SENOKOT [Concomitant]
     Active Substance: SENNOSIDES
  7. OXYCONTIN [Concomitant]
     Active Substance: OXYCODONE HYDROCHLORIDE
  8. LENVIMA [Suspect]
     Active Substance: LENVATINIB
     Indication: RENAL CELL CARCINOMA
     Dosage: UNK
  9. OMEPRAZOLE. [Concomitant]
     Active Substance: OMEPRAZOLE
  10. CABOMETYX [Suspect]
     Active Substance: CABOZANTINIB S-MALATE
     Indication: RENAL CELL CARCINOMA
     Dosage: 60 MG, QD
     Route: 048
     Dates: start: 20181101, end: 20190227
  11. GLUCOSAMINE + CHONDROITIN [Concomitant]
  12. PRILOSEC [Concomitant]
     Active Substance: OMEPRAZOLE MAGNESIUM
  13. TEMAZEPAM. [Concomitant]
     Active Substance: TEMAZEPAM
  14. AFINITOR [Suspect]
     Active Substance: EVEROLIMUS
     Indication: RENAL CELL CARCINOMA
     Dosage: UNK
  15. METHIMAZOLE. [Concomitant]
     Active Substance: METHIMAZOLE
  16. MULTIVITAMINS, COMBINATIONS [Concomitant]
     Active Substance: VITAMINS
  17. BUPROPION. [Concomitant]
     Active Substance: BUPROPION
  18. SERTRALINE [Concomitant]
     Active Substance: SERTRALINE HYDROCHLORIDE
  19. VITAMIN D2 [Concomitant]
     Active Substance: ERGOCALCIFEROL

REACTIONS (2)
  - Death [Fatal]
  - Drug ineffective [Unknown]
